FAERS Safety Report 6468578-4 (Version None)
Quarter: 2009Q4

REPORT INFORMATION
  Report Type: 
  Country: None (occurrence: None)
  Receive Date: 20091202
  Receipt Date: 20091202
  Transmission Date: 20100525
  Serious: No
  Sender: FDA-Public Use
  Company Number: None

PATIENT
  Sex: Female

DRUGS (1)
  1. PEPCID [Suspect]

REACTIONS (3)
  - DRUG INTOLERANCE [None]
  - NAUSEA [None]
  - VOMITING [None]
